FAERS Safety Report 5824620-2 (Version None)
Quarter: 2008Q3

REPORT INFORMATION
  Report Type: 
  Country: None (occurrence: None)
  Receive Date: 20080728
  Receipt Date: 20080715
  Transmission Date: 20090109
  Serious: Yes (Hospitalization)
  Sender: FDA-Public Use
  Company Number: US-ELI_LILLY_AND_COMPANY-US200807003164

PATIENT
  Sex: Female

DRUGS (2)
  1. FORTEO [Suspect]
     Indication: OSTEOPOROSIS
     Dates: start: 20070801
  2. TOPROL-XL [Concomitant]
     Indication: LOSS OF CONSCIOUSNESS

REACTIONS (4)
  - ABDOMINAL PAIN UPPER [None]
  - APPETITE DISORDER [None]
  - GALLBLADDER DISORDER [None]
  - NAUSEA [None]
